FAERS Safety Report 5362516-3 (Version None)
Quarter: 2007Q2

REPORT INFORMATION
  Report Type: 
  Country: None (occurrence: None)
  Receive Date: 20070619
  Receipt Date: 20070604
  Transmission Date: 20071010
  Serious: Yes (Hospitalization)
  Sender: FDA-Public Use
  Company Number: US-SHR-US-2007-001614

PATIENT
  Age: 70 Year
  Sex: Female
  Weight: 62.132 kg

DRUGS (6)
  1. BETASERON [Suspect]
     Indication: RELAPSING-REMITTING MULTIPLE SCLEROSIS
     Dosage: 8 MIU, EVERY 2D
     Route: 058
  2. BETASERON [Suspect]
     Dosage: 9.6 MIU, EVERY 2D
     Route: 058
     Dates: start: 19990120
  3. EFFEXOR [Suspect]
     Indication: MULTIPLE SCLEROSIS
  4. NEURONTIN [Suspect]
     Indication: MULTIPLE SCLEROSIS
  5. LYRICA [Suspect]
     Indication: MULTIPLE SCLEROSIS
     Dosage: UNK, 2X/DAY
     Dates: start: 20061113, end: 20061201
  6. CYMBALTA [Suspect]
     Indication: MULTIPLE SCLEROSIS
     Dosage: 30 MG, 2X/DAY
     Dates: start: 20061011, end: 20061110

REACTIONS (4)
  - CHEST PAIN [None]
  - HYPERLIPIDAEMIA [None]
  - MULTIPLE SCLEROSIS [None]
  - NAUSEA [None]
